FAERS Safety Report 5893049-3 (Version None)
Quarter: 2008Q3

REPORT INFORMATION
  Report Type: 
  Country: None (occurrence: None)
  Receive Date: 20080923
  Receipt Date: 20080320
  Transmission Date: 20090109
  Serious: No
  Sender: FDA-Public Use
  Company Number: US-ASTRAZENECA-2006UW25314

PATIENT
  Age: 29 Year
  Sex: Male
  Weight: 75 kg

DRUGS (10)
  1. SEROQUEL [Suspect]
     Indication: SCHIZOPHRENIA
     Route: 048
     Dates: start: 20001201, end: 20060701
  2. SEROQUEL [Suspect]
     Indication: BIPOLAR DISORDER
     Route: 048
     Dates: start: 20001201, end: 20060701
  3. SEROQUEL [Suspect]
     Indication: DEPRESSION
     Route: 048
     Dates: start: 20001201, end: 20060701
  4. ABILIFY [Concomitant]
  5. GEODON [Concomitant]
  6. HALDOL [Concomitant]
  7. NAVANE [Concomitant]
  8. RISPERDAL [Concomitant]
  9. THORAZINE [Concomitant]
  10. ZYPREXA [Concomitant]

REACTIONS (4)
  - BLOOD CHOLESTEROL INCREASED [None]
  - BLOOD TRIGLYCERIDES INCREASED [None]
  - HYPERGLYCAEMIA [None]
  - OBESITY [None]
